FAERS Safety Report 4278855-3 (Version None)
Quarter: 2004Q1

REPORT INFORMATION
  Report Type: 
  Country: None (occurrence: None)
  Receive Date: 20040122
  Receipt Date: 20040122
  Transmission Date: 20041129
  Serious: No
  Sender: FDA-Public Use
  Company Number: None

PATIENT
  Age: 55 Year
  Sex: Male
  Weight: 86.5 kg

DRUGS (1)
  1. SILDENAFIL 50 MG PFIZER [Suspect]
     Indication: ERECTILE DYSFUNCTION
     Dosage: 50 MG ONCE AS NE ORAL
     Route: 048
     Dates: start: 20010426, end: 20020425

REACTIONS (1)
  - CYANOPSIA [None]
